FAERS Safety Report 10713309 (Version 2)
Quarter: 2015Q1

REPORT INFORMATION
  Report Type: Spontaneous
  Country: MA (occurrence: MA)
  Receive Date: 20150115
  Receipt Date: 20150213
  Transmission Date: 20150721
  Serious: Yes (Other)
  Sender: FDA-Public Use
  Company Number: MA-PFIZER INC-2015017130

PATIENT
  Age: 3 Decade
  Sex: Female

DRUGS (2)
  1. DOSTINEX [Suspect]
     Active Substance: CABERGOLINE
     Indication: INFERTILITY
  2. DOSTINEX [Suspect]
     Active Substance: CABERGOLINE
     Indication: GALACTORRHOEA
     Dosage: UNK, 1X/DAY

REACTIONS (2)
  - Ascites [Recovered/Resolved]
  - Pelvic pain [Recovered/Resolved]
